FAERS Safety Report 9659759 (Version 1)
Quarter: 2013Q4

REPORT INFORMATION
  Report Type: Spontaneous
  Country: US (occurrence: US)
  Receive Date: 20131031
  Receipt Date: 20131031
  Transmission Date: 20140711
  Serious: No
  Sender: FDA-Public Use
  Company Number: US-PFIZER INC-2013306817

PATIENT
  Age: 85 Year
  Sex: Female
  Weight: 50 kg

DRUGS (6)
  1. EFFEXOR XR [Suspect]
     Dosage: 75 MG, ONCE A DAY
     Route: 048
  2. EFFEXOR XR [Suspect]
     Dosage: 75 MG, TWICE A DAY
     Route: 048
  3. EFFEXOR XR [Suspect]
     Dosage: 37.5 MG, ONCE A DAY
     Route: 048
  4. LIPITOR [Concomitant]
     Indication: BLOOD CHOLESTEROL INCREASED
     Dosage: UNK
  5. NEURONTIN [Concomitant]
     Dosage: 300 MG, UNK
  6. KLONOPIN [Concomitant]
     Dosage: UNK

REACTIONS (1)
  - Feeling abnormal [Unknown]
